FAERS Safety Report 8604692-2 (Version None)
Quarter: 2012Q3

REPORT INFORMATION
  Report Type: 
  Country: None (occurrence: None)
  Receive Date: 20120820
  Receipt Date: 20120816
  Transmission Date: 20120928
  Serious: Yes (Other)
  Sender: FDA-Public Use
  Company Number: PHEH2012US016090

PATIENT
  Sex: Female

DRUGS (4)
  1. RECLAST [Suspect]
     Dosage: 5 MG, ONCE PER YEAR
     Route: 042
     Dates: start: 20120621
  2. RECLAST [Suspect]
     Indication: OSTEOPOROSIS
     Dosage: 5 MG, ONCE PER YEAR
     Route: 042
  3. RECLAST [Suspect]
     Dosage: 5 MG, ONCE PER YEAR
     Route: 042
  4. RECLAST [Suspect]
     Dosage: 5 MG, ONCE PER YEAR
     Route: 042

REACTIONS (10)
  - LIMB DISCOMFORT [None]
  - SEPSIS [None]
  - ERYTHEMA [None]
  - HYPOKINESIA [None]
  - GAIT DISTURBANCE [None]
  - ARTHRALGIA [None]
  - MUSCLE DISORDER [None]
  - MUSCULAR WEAKNESS [None]
  - SWELLING [None]
  - BACK PAIN [None]
